FAERS Safety Report 17620756 (Version 1)
Quarter: 2020Q2

REPORT INFORMATION
  Report Type: Spontaneous
  Country: US (occurrence: US)
  Receive Date: 20200401
  Receipt Date: 20200401
  Transmission Date: 20200713
  Serious: Yes (Other)
  Sender: FDA-Public Use
  Company Number: None

PATIENT
  Age: 51 Year
  Sex: Male
  Weight: 9.98 kg

DRUGS (2)
  1. ARMOUR THYROID [Suspect]
     Active Substance: THYROID, PORCINE
  2. LEVOTHYROXINE 200MCG [Suspect]
     Active Substance: LEVOTHYROXINE

REACTIONS (4)
  - Rash [None]
  - Urticaria [None]
  - Product substitution issue [None]
  - Multiple allergies [None]

NARRATIVE: CASE EVENT DATE: 20200401
